FAERS Safety Report 9748471 (Version 1)
Quarter: 2013Q4

REPORT INFORMATION
  Report Type: Report from Study
  Country: PT (occurrence: PT)
  Receive Date: 20131212
  Receipt Date: 20131212
  Transmission Date: 20140711
  Serious: Yes (Other)
  Sender: FDA-Public Use
  Company Number: PT-VERTEX PHARMACEUTICALS INC-2013-011750

PATIENT
  Age: 58 Year
  Sex: Male

DRUGS (7)
  1. INCIVO [Suspect]
     Indication: HEPATITIS C
     Dosage: 1125 MG, BID
     Route: 065
  2. PEGINTERFERON ALFA-2A [Suspect]
     Indication: HEPATITIS C
     Dosage: 180 ?G, QW
     Route: 065
  3. RIBAVIRIN [Suspect]
     Indication: HEPATITIS C
     Dosage: 1200 MG, QD
     Route: 065
  4. RIBAVIRIN [Suspect]
     Dosage: 800 MG, QD
     Route: 065
  5. METFORMIN [Concomitant]
     Indication: TYPE 2 DIABETES MELLITUS
     Dosage: DOSAGE FORM: UNSPECIFIED
     Route: 065
  6. BECLOMETHASONE [Concomitant]
     Indication: ASTHMA
     Dosage: DOSAGE FORM: INHALATION
     Route: 065
  7. VALSARTAN [Concomitant]
     Indication: HYPERTENSION
     Dosage: DOSAGE FORM: UNSPECIFIED
     Route: 065

REACTIONS (4)
  - Upper respiratory tract infection [Recovered/Resolved]
  - Depression [Unknown]
  - Rash [Recovered/Resolved]
  - Haemoglobin decreased [Recovered/Resolved]
